FAERS Safety Report 13642574 (Version 1)
Quarter: 2017Q2

REPORT INFORMATION
  Report Type: Spontaneous
  Country: DK (occurrence: DK)
  Receive Date: 20170612
  Receipt Date: 20170612
  Transmission Date: 20170830
  Serious: Yes (Hospitalization)
  Sender: FDA-Public Use
  Company Number: DK-AUROBINDO-AUR-APL-2017-35369

PATIENT
  Sex: Female

DRUGS (2)
  1. ALENDRONIC ACID AUROBINDO 70 MG TABLETS [Suspect]
     Active Substance: ALENDRONIC ACID
     Indication: OSTEOPOROSIS
     Dosage: 70 MG, EVERY WEEK
     Route: 065
     Dates: start: 2006, end: 2016
  2. ALENDRONAT SANDOZ [Suspect]
     Active Substance: ALENDRONATE SODIUM
     Indication: OSTEOPOROSIS
     Dosage: 70 MG, EVERY WEEK
     Route: 065
     Dates: start: 2006, end: 2016

REACTIONS (2)
  - Surgery [Recovered/Resolved]
  - Osteonecrosis of jaw [Recovered/Resolved]
